FAERS Safety Report 20162491 (Version 3)
Quarter: 2021Q4

REPORT INFORMATION
  Report Type: Spontaneous
  Country: AT (occurrence: AT)
  Receive Date: 20211208
  Receipt Date: 20211229
  Transmission Date: 20220304
  Serious: No
  Sender: FDA-Public Use
  Company Number: AT-JNJFOC-20211136989

PATIENT
  Sex: Female

DRUGS (1)
  1. SIMPONI [Suspect]
     Active Substance: GOLIMUMAB
     Indication: Product used for unknown indication
     Dosage: DOSING STRENGTH: 50.00 MG / 0.50 ML
     Route: 058

REACTIONS (3)
  - Expulsion of medication [Unknown]
  - Exposure via skin contact [Unknown]
  - Device leakage [Unknown]
